FAERS Safety Report 17952705 (Version 2)
Quarter: 2020Q3

REPORT INFORMATION
  Report Type: Spontaneous
  Country: US (occurrence: US)
  Receive Date: 20200626
  Receipt Date: 20200707
  Transmission Date: 20201103
  Serious: Yes (Hospitalization)
  Sender: FDA-Public Use
  Company Number: US-LUNDBECK-DKLU3017920

PATIENT
  Age: 10 Year
  Sex: Female

DRUGS (1)
  1. ONFI [Suspect]
     Active Substance: CLOBAZAM
     Indication: PRODUCT USED FOR UNKNOWN INDICATION
     Route: 048

REACTIONS (6)
  - Small intestinal obstruction [Recovered/Resolved]
  - Ileal perforation [Recovered/Resolved]
  - Gastrointestinal perforation [Recovered/Resolved]
  - Ileostomy [Recovered/Resolved]
  - Oral administration complication [Recovered/Resolved]
  - Internal hernia [Recovered/Resolved]
